FAERS Safety Report 5077291-X (Version None)
Quarter: 2006Q3

REPORT INFORMATION
  Report Type: 
  Country: None (occurrence: None)
  Receive Date: 20060810
  Receipt Date: 20060116
  Transmission Date: 20061208
  Serious: No
  Sender: FDA-Public Use
  Company Number: US-GLAXOSMITHKLINE-A0589913A

PATIENT
  Sex: Female

DRUGS (1)
  1. PAXIL [Suspect]
     Indication: OBSESSIVE-COMPULSIVE DISORDER
     Route: 048
     Dates: start: 20010101, end: 20050101

REACTIONS (17)
  - ABDOMINAL PAIN UPPER [None]
  - CHILLS [None]
  - CRYING [None]
  - DIARRHOEA [None]
  - DYSARTHRIA [None]
  - FALL [None]
  - FATIGUE [None]
  - HYPERHIDROSIS [None]
  - MIGRAINE [None]
  - MOOD SWINGS [None]
  - PALPITATIONS [None]
  - PANIC REACTION [None]
  - PARAESTHESIA [None]
  - SOCIAL AVOIDANT BEHAVIOUR [None]
  - VERTIGO [None]
  - VOMITING [None]
  - WEIGHT INCREASED [None]
